FAERS Safety Report 21374585 (Version 2)
Quarter: 2022Q4

REPORT INFORMATION
  Report Type: Spontaneous
  Country: EG (occurrence: EG)
  Receive Date: 20220926
  Receipt Date: 20221003
  Transmission Date: 20230112
  Serious: Yes (Other)
  Sender: FDA-Public Use
  Company Number: EG-NOVOPROD-960349

PATIENT
  Age: 819 Month
  Sex: Male
  Weight: 66 kg

DRUGS (7)
  1. CLARITINE ALLERGY [Concomitant]
     Indication: Hypersensitivity
     Dosage: 1 TAB/DAY (STARTED FROM 2001 OR 2002)
     Route: 048
  2. SINGULAIR [Concomitant]
     Active Substance: MONTELUKAST SODIUM
     Indication: Prophylaxis
     Dosage: 1 TAB/DAY ( STARTED FROM 2001 OR 2002)
     Route: 048
  3. .ALPHA.-LIPOIC ACID [Concomitant]
     Active Substance: .ALPHA.-LIPOIC ACID
     Indication: Prophylaxis
     Dosage: 600 MG, QD (FROM 2001 OR 2002)
     Route: 048
  4. COVERAM [Concomitant]
     Active Substance: AMLODIPINE\PERINDOPRIL
     Indication: Hypertension
     Dosage: 5 MG, QD (SINCE 2011-2012)
     Route: 048
     Dates: start: 2011
  5. IVABRADINE [Concomitant]
     Active Substance: IVABRADINE
     Indication: Product used for unknown indication
     Dosage: 1 TAB/DAY (STARTED FROM 2001 OR 2002)
     Route: 048
  6. PLAVIX [Concomitant]
     Active Substance: CLOPIDOGREL BISULFATE
     Indication: Haemophilia
     Dosage: 1 TAB/DAY (STARTED FROM 2001 OR 2002)
     Route: 048
  7. INSULIN HUMAN [Suspect]
     Active Substance: INSULIN HUMAN
     Indication: Diabetes mellitus
     Dosage: 55 IU, QD (30 IU BREAKFAST AND 25 IU DINNER)
     Route: 058
     Dates: start: 2002

REACTIONS (3)
  - Coronary arterial stent insertion [Recovered/Resolved]
  - Myringotomy [Recovered/Resolved]
  - Hypertension [Unknown]

NARRATIVE: CASE EVENT DATE: 20170101
